FAERS Safety Report 8618471 (Version 3)
Quarter: 2012Q4

REPORT INFORMATION
  Report Type: 
  Country: BR (occurrence: BR)
  Receive Date: 20120618
  Receipt Date: 20120928
  Transmission Date: 20130627
  Serious: Yes (Other)
  Sender: FDA-Public Use
  Company Number: BR-BRISTOL-MYERS SQUIBB COMPANY-16665754

PATIENT
  Age: 67 Year
  Sex: Female
  Weight: 61 kg

DRUGS (1)
  1. HYDREA CAPS 500 MG [Suspect]
     Indication: ESSENTIAL THROMBOCYTHAEMIA
     Dosage: 1DF: 3caps, 2Caps and 3 caps on Tuesdays
     Route: 048
     Dates: start: 2009

REACTIONS (4)
  - Platelet count increased [Not Recovered/Not Resolved]
  - Anaemia [Unknown]
  - Nail discolouration [Unknown]
  - Suspected counterfeit product [Unknown]
